FAERS Safety Report 7982961-7 (Version None)
Quarter: 2011Q4

REPORT INFORMATION
  Report Type: 
  Country: None (occurrence: None)
  Receive Date: 20111215
  Receipt Date: 20111213
  Transmission Date: 20120403
  Serious: Yes (Hospitalization)
  Sender: FDA-Public Use
  Company Number: US-MERCK-1106USA00373

PATIENT
  Age: 65 Year
  Sex: Female

DRUGS (2)
  1. BONIVA [Concomitant]
     Route: 048
     Dates: start: 20060101, end: 20080501
  2. FOSAMAX [Suspect]
     Indication: OSTEOPENIA
     Route: 048
     Dates: start: 20030101, end: 20060301

REACTIONS (7)
  - ANXIETY [None]
  - FRACTURE NONUNION [None]
  - WRIST FRACTURE [None]
  - ADVERSE EVENT [None]
  - FEMUR FRACTURE [None]
  - DEPRESSION [None]
  - FALL [None]
